FAERS Safety Report 6422961-1 (Version None)
Quarter: 2009Q4

REPORT INFORMATION
  Report Type: 
  Country: None (occurrence: None)
  Receive Date: 20091102
  Receipt Date: 20091023
  Transmission Date: 20100525
  Serious: Yes (Hospitalization)
  Sender: FDA-Public Use
  Company Number: US-ASTRAZENECA-2009SE15119

PATIENT
  Age: 32 Year
  Sex: Male
  Weight: 75.7 kg

DRUGS (7)
  1. SYMBICORT [Suspect]
     Indication: ASTHMA
     Dosage: 160, 2 PUFFS BID
     Route: 055
     Dates: start: 20090908, end: 20090926
  2. ZYRTEC [Concomitant]
  3. SINGULAIR [Concomitant]
     Indication: ASTHMA
     Route: 048
  4. ALBUTEROL [Concomitant]
     Indication: DYSPNOEA
     Dosage: 2 PUFFS Q4-6 PRN
     Route: 055
  5. ALBUTEROL [Concomitant]
     Indication: WHEEZING
     Dosage: 2 PUFFS Q4-6 PRN
     Route: 055
  6. ACIPHEX [Concomitant]
     Indication: GASTROOESOPHAGEAL REFLUX DISEASE
     Route: 048
  7. FLONASE [Concomitant]
     Dosage: 2 SPRAY EACH NOSTRIL DAILY
     Route: 045

REACTIONS (3)
  - DYSPNOEA [None]
  - RASH [None]
  - WHEEZING [None]
